FAERS Safety Report 7101578-X (Version None)
Quarter: 2010Q4

REPORT INFORMATION
  Report Type: 
  Country: None (occurrence: None)
  Receive Date: 20101115
  Receipt Date: 20101108
  Transmission Date: 20110411
  Serious: Yes (Death)
  Sender: FDA-Public Use
  Company Number: VE-PFIZER INC-2010143835

PATIENT
  Age: 45 Year
  Sex: Male

DRUGS (3)
  1. LIPITOR [Suspect]
     Indication: HYPERTRIGLYCERIDAEMIA
     Dosage: 40 MG, 1X/DAY
     Route: 048
     Dates: start: 20101013, end: 20101101
  2. CORASPIN [Concomitant]
     Dosage: 81 MG, 1X/DAY
     Route: 048
  3. CONCOR [Concomitant]
     Indication: HYPERTENSION
     Dosage: 0.5 MG, 1X/DAY
     Route: 048
     Dates: start: 20101015

REACTIONS (1)
  - MYOCARDIAL INFARCTION [None]
